FAERS Safety Report 10238712 (Version 2)
Quarter: 2014Q2

REPORT INFORMATION
  Report Type: Report from Study
  Country: US (occurrence: US)
  Receive Date: 20140616
  Receipt Date: 20140616
  Transmission Date: 20141212
  Serious: Yes (Other)
  Sender: FDA-Public Use
  Company Number: US-SA-200417320US

PATIENT
  Age: 56 Year
  Sex: Female
  Weight: 96.2 kg

DRUGS (13)
  1. DOCETAXEL [Suspect]
     Indication: BREAST CANCER
     Dates: start: 20030917, end: 20030917
  2. DOCETAXEL [Suspect]
     Indication: BREAST CANCER
     Dates: start: 20031007, end: 20031118
  3. HERCEPTIN [Suspect]
     Indication: BREAST CANCER
     Route: 042
     Dates: start: 20040106, end: 20040826
  4. HERCEPTIN [Suspect]
     Indication: BREAST CANCER
     Route: 042
     Dates: start: 20030916, end: 20030916
  5. HERCEPTIN [Suspect]
     Indication: BREAST CANCER
     Route: 042
     Dates: start: 20030923, end: 20031111
  6. HERCEPTIN [Suspect]
     Indication: BREAST CANCER
     Route: 042
     Dates: start: 20031216, end: 20031216
  7. DOXORUBICIN [Suspect]
     Indication: BREAST CANCER
     Dates: start: 20030624, end: 20030826
  8. CYCLOPHOSPHAMIDE [Suspect]
     Indication: BREAST CANCER
     Dates: start: 20030624, end: 20030826
  9. LEXAPRO [Concomitant]
     Indication: DEPRESSION
     Route: 048
     Dates: start: 200303
  10. BENICAR [Concomitant]
     Indication: HYPERTENSION
     Route: 048
     Dates: start: 200210, end: 20040930
  11. CELEBREX [Concomitant]
     Indication: NECK PAIN
     Route: 048
     Dates: start: 200307
  12. COUMADIN [Concomitant]
     Indication: CATHETER MANAGEMENT
     Route: 048
     Dates: start: 20030710
  13. MVI [Concomitant]
     Route: 048
     Dates: start: 200411

REACTIONS (4)
  - Cardiomyopathy [Recovered/Resolved with Sequelae]
  - Cough [Recovered/Resolved with Sequelae]
  - Dyspnoea [Recovered/Resolved with Sequelae]
  - Cardiomegaly [Recovered/Resolved with Sequelae]
